FAERS Safety Report 17142433 (Version 12)
Quarter: 2021Q3

REPORT INFORMATION
  Report Type: Spontaneous
  Country: US (occurrence: US)
  Receive Date: 20191211
  Receipt Date: 20210903
  Transmission Date: 20211014
  Serious: No
  Sender: FDA-Public Use
  Company Number: US-EISAI MEDICAL RESEARCH-EC-2019-066621

PATIENT
  Age: 82 Year
  Sex: Male

DRUGS (17)
  1. APTIOM [Suspect]
     Active Substance: ESLICARBAZEPINE ACETATE
     Indication: PRODUCT USED FOR UNKNOWN INDICATION
     Route: 065
  2. APTIOM [Suspect]
     Active Substance: ESLICARBAZEPINE ACETATE
     Route: 065
  3. KEPPRA [Suspect]
     Active Substance: LEVETIRACETAM
     Dosage: 700 MG IN THE MORNING, 1000 MG IN THE EVENING (EVERY DAY)
     Route: 048
  4. APTIOM [Suspect]
     Active Substance: ESLICARBAZEPINE ACETATE
     Route: 065
  5. APTIOM [Suspect]
     Active Substance: ESLICARBAZEPINE ACETATE
     Dosage: DOSAGE AND FREQUENCY UNKNOWN (SLOW DOWN TITRATION)
     Route: 065
  6. APTIOM [Suspect]
     Active Substance: ESLICARBAZEPINE ACETATE
     Route: 065
  7. KEPPRA [Suspect]
     Active Substance: LEVETIRACETAM
     Route: 048
  8. APTIOM [Suspect]
     Active Substance: ESLICARBAZEPINE ACETATE
     Dosage: DOSAGE AND FREQUENCY UNKNOWN (SLOW UP TITRATION)
     Route: 065
  9. DILANTIN [Concomitant]
     Active Substance: PHENYTOIN
     Indication: PRODUCT USED FOR UNKNOWN INDICATION
     Route: 048
  10. DILANTIN [Concomitant]
     Active Substance: PHENYTOIN
     Route: 048
  11. FYCOMPA [Suspect]
     Active Substance: PERAMPANEL
     Route: 048
     Dates: start: 20191207, end: 20200206
  12. FYCOMPA [Suspect]
     Active Substance: PERAMPANEL
     Indication: PARTIAL SEIZURES
     Route: 048
     Dates: start: 20191122, end: 20191130
  13. KEPPRA [Suspect]
     Active Substance: LEVETIRACETAM
     Indication: PRODUCT USED FOR UNKNOWN INDICATION
     Route: 048
  14. DILANTIN [Concomitant]
     Active Substance: PHENYTOIN
     Route: 048
     Dates: end: 2020
  15. FYCOMPA [Suspect]
     Active Substance: PERAMPANEL
     Route: 048
     Dates: start: 20191201, end: 20191206
  16. FYCOMPA [Suspect]
     Active Substance: PERAMPANEL
     Route: 048
     Dates: start: 20200207
  17. KEPPRA [Suspect]
     Active Substance: LEVETIRACETAM
     Dosage: 1000 MG IN THE MORNING, 500 MG IN THE EVENING (EVERY DAY)
     Route: 048

REACTIONS (8)
  - Balance disorder [Not Recovered/Not Resolved]
  - Slow speech [Unknown]
  - Epileptic aura [Unknown]
  - Fall [Not Recovered/Not Resolved]
  - Insomnia [Unknown]
  - Dysarthria [Unknown]
  - Amnesia [Not Recovered/Not Resolved]
  - Seizure [Unknown]

NARRATIVE: CASE EVENT DATE: 2019
